FAERS Safety Report 4533911-7 (Version None)
Quarter: 2004Q4

REPORT INFORMATION
  Report Type: 
  Country: None (occurrence: None)
  Receive Date: 20041210
  Receipt Date: 20041013
  Transmission Date: 20050328
  Serious: Yes (Other)
  Sender: FDA-Public Use
  Company Number: A03200403451

PATIENT
  Age: 60 Year
  Sex: Male
  Weight: 136.9863 kg

DRUGS (3)
  1. ELOXATIN [Suspect]
     Indication: COLORECTAL CANCER METASTATIC
     Dosage: 260 MG OTHER - INTRAVENOUS NOS
     Route: 042
     Dates: start: 20041012, end: 20041012
  2. CAPECITABINE [Concomitant]
  3. DOLASETRON MESILATE [Concomitant]

REACTIONS (4)
  - BLOOD PRESSURE INCREASED [None]
  - HEART RATE INCREASED [None]
  - SWELLING FACE [None]
  - SWOLLEN TONGUE [None]
